FAERS Safety Report 5201135-6 (Version None)
Quarter: 2007Q1

REPORT INFORMATION
  Report Type: 
  Country: None (occurrence: None)
  Receive Date: 20070103
  Receipt Date: 20061211
  Transmission Date: 20070707
  Serious: Yes (Hospitalization)
  Sender: FDA-Public Use
  Company Number: 2006P1000586

PATIENT
  Age: 66 Year
  Sex: Male

DRUGS (11)
  1. NICARDIPINE HYDROCHLORIDE [Suspect]
     Indication: HYPERTENSION
     Dosage: 20 MG; PO
     Route: 048
     Dates: start: 20051228, end: 20060504
  2. ISOSORBIDE DINITRATE [Suspect]
     Indication: HYPERTENSION
     Dosage: SL
     Route: 060
     Dates: start: 20051228, end: 20060502
  3. ACEBUTOLOL [Suspect]
     Indication: ISCHAEMIC CARDIOMYOPATHY
     Dates: start: 20051015
  4. PERINDOPRIL ERBUMINE [Suspect]
     Indication: ISCHAEMIC CARDIOMYOPATHY
     Dosage: PO
     Route: 048
  5. AMIODARONE HCL [Suspect]
     Indication: ISCHAEMIC CARDIOMYOPATHY
     Dates: start: 20051015
  6. CLOPIDOGREL [Suspect]
     Indication: ISCHAEMIC CARDIOMYOPATHY
     Dosage: PO
     Route: 048
     Dates: start: 20051015
  7. ALPRAZOLAM [Suspect]
     Indication: DRUG USE FOR UNKNOWN INDICATION
     Dosage: 2 MG; PO
     Route: 048
     Dates: start: 20040615, end: 20060502
  8. NOCTRAN 10 (NOCTRAN 10) [Suspect]
     Indication: DRUG USE FOR UNKNOWN INDICATION
     Dosage: 10 MG; PO
     Route: 048
     Dates: start: 20060103, end: 20060502
  9. FLUOXETINE [Suspect]
     Indication: DRUG USE FOR UNKNOWN INDICATION
     Dosage: 40 MG; PO
     Route: 048
     Dates: start: 20051215, end: 20060502
  10. DIVALPROEX SODIUM [Concomitant]
  11. BENFLUOREX [Concomitant]

REACTIONS (9)
  - ACUTE HEPATIC FAILURE [None]
  - ATRIOVENTRICULAR BLOCK COMPLETE [None]
  - BRADYPHRENIA [None]
  - CARDIOMYOPATHY [None]
  - DIARRHOEA [None]
  - DISSEMINATED INTRAVASCULAR COAGULATION [None]
  - DYSSTASIA [None]
  - FALL [None]
  - RHABDOMYOLYSIS [None]
